FAERS Safety Report 19823694 (Version 1)
Quarter: 2021Q3

REPORT INFORMATION
  Report Type: Report from Study
  Country: GB (occurrence: GB)
  Receive Date: 20210913
  Receipt Date: 20210913
  Transmission Date: 20211014
  Serious: Yes (Other)
  Sender: FDA-Public Use
  Company Number: GB-MYLANLABS-2021M1060650

PATIENT
  Age: 49 Year
  Sex: Female

DRUGS (3)
  1. DOXAZOSIN [Suspect]
     Active Substance: DOXAZOSIN MESYLATE
     Indication: IMMUNE-MEDIATED NEUROPATHY
     Dosage: UNK
     Route: 065
     Dates: start: 202011
  2. PERINDOPRIL [Suspect]
     Active Substance: PERINDOPRIL
     Indication: IMMUNE-MEDIATED NEUROPATHY
     Dosage: UNK
     Route: 065
     Dates: start: 2019, end: 202011
  3. RAMIPRIL. [Suspect]
     Active Substance: RAMIPRIL
     Indication: IMMUNE-MEDIATED NEUROPATHY
     Dosage: UNK
     Route: 065
     Dates: start: 202102

REACTIONS (4)
  - Dizziness [Recovering/Resolving]
  - Renal impairment [Recovering/Resolving]
  - Blood pressure inadequately controlled [Recovering/Resolving]
  - Product use in unapproved indication [Unknown]
